FAERS Safety Report 13775882 (Version 1)
Quarter: 2017Q3

REPORT INFORMATION
  Report Type: Spontaneous
  Country: JP (occurrence: JP)
  Receive Date: 20170721
  Receipt Date: 20170721
  Transmission Date: 20171127
  Serious: Yes (Congenital Anomaly, Other)
  Sender: FDA-Public Use
  Company Number: JP-GUERBET-JP-20160018

PATIENT
  Sex: Male
  Weight: 3.01 kg

DRUGS (1)
  1. LIPIODOL [Suspect]
     Active Substance: ETHIODIZED OIL
     Indication: SALPINGOGRAM
     Route: 050
     Dates: start: 20141228, end: 20141228

REACTIONS (1)
  - Goitre congenital [Recovering/Resolving]

NARRATIVE: CASE EVENT DATE: 20150714
